FAERS Safety Report 5016634-X (Version None)
Quarter: 2006Q2

REPORT INFORMATION
  Report Type: 
  Country: None (occurrence: None)
  Receive Date: 20060419
  Receipt Date: 20060202
  Transmission Date: 20061013
  Serious: No
  Sender: FDA-Public Use
  Company Number: US200602000675

PATIENT
  Sex: Female

DRUGS (8)
  1. ALIMTA [Suspect]
     Indication: BREAST CANCER METASTATIC
     Dates: start: 20060126
  2. HERCEPTIN [Concomitant]
  3. CYANOCOBALAMIN [Concomitant]
  4. VITAMIN B6 [Concomitant]
  5. DECADRON SRC [Concomitant]
  6. FOLIC ACID [Concomitant]
  7. PROCRIT [Concomitant]
  8. .. [Concomitant]

REACTIONS (7)
  - ABDOMINAL PAIN UPPER [None]
  - CHILLS [None]
  - MALAISE [None]
  - NAUSEA [None]
  - PRURITUS [None]
  - RASH [None]
  - SKIN DISORDER [None]
